FAERS Safety Report 4293075-4 (Version None)
Quarter: 2004Q1

REPORT INFORMATION
  Report Type: 
  Country: None (occurrence: None)
  Receive Date: 20040212
  Receipt Date: 20020823
  Transmission Date: 20041129
  Serious: No
  Sender: FDA-Public Use
  Company Number: US-GLAXOSMITHKLINE-A0379049A

PATIENT
  Age: 41 Year
  Sex: Female
  Weight: 65.9 kg

DRUGS (8)
  1. PAXIL [Suspect]
     Indication: DEPRESSION
     Dates: end: 20020729
  2. PHENOBARBITAL TAB [Concomitant]
     Dates: end: 20020729
  3. XANAX [Concomitant]
     Dates: end: 20020729
  4. CELEBREX [Concomitant]
     Dates: end: 20020729
  5. ZANAFLEX [Concomitant]
     Dates: end: 20020729
  6. IMITREX [Concomitant]
     Dates: end: 20020729
  7. NEURONTIN [Concomitant]
     Dates: end: 20020729
  8. FLEXERIL [Concomitant]
     Dates: end: 20020729

REACTIONS (7)
  - CHILLS [None]
  - HYPERSOMNIA [None]
  - IRRITABILITY [None]
  - MIGRAINE [None]
  - NICOTINE DEPENDENCE [None]
  - NIGHT SWEATS [None]
  - PYREXIA [None]
